FAERS Safety Report 8108988-2 (Version None)
Quarter: 2012Q1

REPORT INFORMATION
  Report Type: 
  Country: None (occurrence: None)
  Receive Date: 20120202
  Receipt Date: 20120105
  Transmission Date: 20120608
  Serious: No
  Sender: FDA-Public Use
  Company Number: US-AMGEN-USASP2012000795

PATIENT
  Age: 47 Year
  Sex: Female
  Weight: 48.98 kg

DRUGS (3)
  1. ENBREL [Suspect]
     Indication: PRODUCT USED FOR UNKNOWN INDICATION
     Dosage: 25 MG, 2 TIMES/WK
     Route: 058
  2. ZOLPIDEM [Concomitant]
     Dosage: 5 MG, UNK
     Route: 048
  3. ALLEGRA-D 12 HOUR [Concomitant]
     Route: 048

REACTIONS (3)
  - INJECTION SITE REACTION [None]
  - INJECTION SITE ERYTHEMA [None]
  - SINUSITIS [None]
